FAERS Safety Report 7010235-X (Version None)
Quarter: 2010Q3

REPORT INFORMATION
  Report Type: 
  Country: None (occurrence: None)
  Receive Date: 20100923
  Receipt Date: 20100914
  Transmission Date: 20110219
  Serious: Yes (Disabling)
  Sender: FDA-Public Use
  Company Number: GXKR2010AT10453

PATIENT
  Age: 60 Year
  Sex: Male
  Weight: 92 kg

DRUGS (3)
  1. OXALIPLATINO EBEWE (NGX) [Suspect]
     Indication: RECTAL CANCER
     Dosage: 85 MG/M2/DAY
     Route: 042
     Dates: start: 20091001, end: 20100301
  2. FLUOROURACIL [Suspect]
     Indication: RECTAL CANCER
     Dosage: UNK
     Route: 042
     Dates: start: 20091001, end: 20100301
  3. CALCIUM FOLINATE [Concomitant]
     Dosage: UNK
     Route: 042
     Dates: end: 20100301

REACTIONS (2)
  - BLEPHAROSPASM [None]
  - EYELID PTOSIS [None]
